FAERS Safety Report 19031257 (Version 1)
Quarter: 2021Q1

REPORT INFORMATION
  Report Type: Spontaneous
  Country: US (occurrence: US)
  Receive Date: 20210319
  Receipt Date: 20210319
  Transmission Date: 20210420
  Serious: Yes (Other)
  Sender: FDA-Public Use
  Company Number: US-ZOGENIX INTERNATIONAL LIMITED, A WHOLLY OWNED SUBSIDIARY OF ZOGENIX, INC.-2021ZX000112

PATIENT
  Age: 5 Year
  Sex: Female
  Weight: 17.25 kg

DRUGS (7)
  1. VIMPAT [Concomitant]
     Active Substance: LACOSAMIDE
     Indication: SEIZURE
     Route: 065
     Dates: start: 20210215
  2. MELATONIN [Concomitant]
     Active Substance: MELATONIN
     Indication: INSOMNIA
     Route: 065
  3. CLOBAZAM. [Concomitant]
     Active Substance: CLOBAZAM
     Indication: PRODUCT USED FOR UNKNOWN INDICATION
     Route: 065
  4. CHARLOTTE^S WEB CBD [Concomitant]
     Indication: MYOCLONIC EPILEPSY
     Route: 065
  5. FINTEPLA [Suspect]
     Active Substance: FENFLURAMINE
     Route: 048
     Dates: start: 2021, end: 2021
  6. FINTEPLA [Suspect]
     Active Substance: FENFLURAMINE
     Indication: SEVERE MYOCLONIC EPILEPSY OF INFANCY
     Route: 048
     Dates: start: 20210106, end: 202101
  7. FINTEPLA [Suspect]
     Active Substance: FENFLURAMINE
     Route: 048
     Dates: start: 202102, end: 2021

REACTIONS (4)
  - Generalised tonic-clonic seizure [Recovered/Resolved]
  - Hallucination [Unknown]
  - Anger [Unknown]
  - Insomnia [Unknown]

NARRATIVE: CASE EVENT DATE: 2021
